FAERS Safety Report 7078751-2 (Version None)
Quarter: 2010Q4

REPORT INFORMATION
  Report Type: 
  Country: None (occurrence: None)
  Receive Date: 20101102
  Receipt Date: 20101025
  Transmission Date: 20110411
  Serious: Yes (Other)
  Sender: FDA-Public Use
  Company Number: DE-PFIZER INC-2010122308

PATIENT
  Age: 47 Year
  Sex: Female
  Weight: 59 kg

DRUGS (3)
  1. ATORVASTATIN CALCIUM [Interacting]
     Indication: HYPERLIPIDAEMIA
     Dosage: 40 MG, 1X/DAY
     Route: 048
     Dates: start: 20091103
  2. ANASTROZOLE [Interacting]
     Indication: BREAST CANCER
     Dosage: UNK
     Dates: start: 20091101
  3. TAMOXIFEN CITRATE [Suspect]
     Dosage: UNK

REACTIONS (5)
  - BLOOD CHOLESTEROL INCREASED [None]
  - BLOOD TRIGLYCERIDES INCREASED [None]
  - DRUG INTERACTION [None]
  - INHIBITORY DRUG INTERACTION [None]
  - LOW DENSITY LIPOPROTEIN INCREASED [None]
